FAERS Safety Report 21568389 (Version 1)
Quarter: 2022Q4

REPORT INFORMATION
  Report Type: Spontaneous
  Country: US (occurrence: US)
  Receive Date: 20221108
  Receipt Date: 20221108
  Transmission Date: 20230112
  Serious: No
  Sender: FDA-Public Use
  Company Number: US-JNJFOC-20221048084

PATIENT
  Sex: Male
  Weight: 65.830 kg

DRUGS (4)
  1. RISPERDAL CONSTA [Suspect]
     Active Substance: RISPERIDONE
     Indication: Product used for unknown indication
     Route: 030
     Dates: start: 2014, end: 20220929
  2. RISPERDAL CONSTA [Suspect]
     Active Substance: RISPERIDONE
  3. RISPERDAL CONSTA [Suspect]
     Active Substance: RISPERIDONE
  4. RISPERDAL CONSTA [Suspect]
     Active Substance: RISPERIDONE

REACTIONS (11)
  - Adverse drug reaction [Unknown]
  - Sluggishness [Unknown]
  - Fatigue [Unknown]
  - Dizziness [Unknown]
  - Hypokinesia [Unknown]
  - Stupor [Unknown]
  - Feeling abnormal [Unknown]
  - Depression [Unknown]
  - Therapy cessation [Unknown]
  - Product quality issue [Unknown]
  - Feeling abnormal [Unknown]

NARRATIVE: CASE EVENT DATE: 20220101
